FAERS Safety Report 6019536-5 (Version None)
Quarter: 2008Q4

REPORT INFORMATION
  Report Type: 
  Country: None (occurrence: None)
  Receive Date: 20081224
  Receipt Date: 20081217
  Transmission Date: 20090506
  Serious: Yes (Hospitalization, Other)
  Sender: FDA-Public Use
  Company Number: US-AMGEN-US319810

PATIENT
  Sex: Male

DRUGS (16)
  1. PANITUMUMAB [Suspect]
     Indication: COLORECTAL CANCER
     Route: 042
     Dates: start: 20071106
  2. DOXYCYCLINE [Concomitant]
     Route: 048
  3. ALPRAZOLAM [Concomitant]
     Route: 048
  4. LEXAPRO [Concomitant]
  5. COUMADIN [Concomitant]
     Route: 048
  6. OXYCONTIN [Concomitant]
  7. MAGNESIUM OXIDE [Concomitant]
     Route: 048
  8. PERCOCET [Concomitant]
     Route: 048
  9. PREDNISOLONE [Concomitant]
     Route: 031
     Dates: end: 20081101
  10. CATAPRES [Concomitant]
  11. LOPRESSOR [Concomitant]
  12. TOBRAMYCIN [Concomitant]
     Route: 031
  13. GLUCOVANCE [Concomitant]
     Route: 048
     Dates: start: 20080623
  14. FLUOROURACIL [Concomitant]
     Route: 042
  15. CAMPTOSAR [Concomitant]
     Route: 042
  16. LEUCOVORIN CALCIUM [Concomitant]
     Route: 042

REACTIONS (14)
  - ATELECTASIS [None]
  - BLOOD CREATINE PHOSPHOKINASE INCREASED [None]
  - BLOOD CREATINE PHOSPHOKINASE MB INCREASED [None]
  - BUNDLE BRANCH BLOCK RIGHT [None]
  - CEREBRAL ATROPHY [None]
  - CONJUNCTIVITIS BACTERIAL [None]
  - CONVULSION [None]
  - DIABETIC ENCEPHALOPATHY [None]
  - ELECTROCARDIOGRAM T WAVE INVERSION [None]
  - HAEMOGLOBIN DECREASED [None]
  - MUSCULOSKELETAL CHEST PAIN [None]
  - PULMONARY FIBROSIS [None]
  - RIGHT VENTRICULAR HYPERTROPHY [None]
  - ROAD TRAFFIC ACCIDENT [None]
